FAERS Safety Report 17222465 (Version 1)
Quarter: 2020Q1

REPORT INFORMATION
  Report Type: Spontaneous
  Country: IT (occurrence: IT)
  Receive Date: 20200101
  Receipt Date: 20200101
  Transmission Date: 20200409
  Serious: Yes (Other)
  Sender: FDA-Public Use
  Company Number: IT-AUROBINDO-AUR-APL-2019-108502

PATIENT
  Age: 55 Year
  Sex: Female

DRUGS (2)
  1. CARBOPLATIN CONCENTRATE FOR SOLUTION FOR INFUSION [Suspect]
     Active Substance: CARBOPLATIN
     Indication: VULVAL CANCER
     Dosage: 720 MILLIGRAM, CYCLICAL
     Route: 042
     Dates: start: 20191114
  2. PACLITAXEL CONCENTRATE FOR SOLUTION FOR INFUSION [Suspect]
     Active Substance: PACLITAXEL
     Indication: VULVAL CANCER
     Dosage: 329 MILLIGRAM, CYCLICAL
     Route: 042
     Dates: start: 20191114

REACTIONS (2)
  - Neuralgia [Recovered/Resolved]
  - Back pain [Recovered/Resolved]

NARRATIVE: CASE EVENT DATE: 20191206
